FAERS Safety Report 19024235 (Version 5)
Quarter: 2022Q1

REPORT INFORMATION
  Report Type: Report from Study
  Country: CA (occurrence: CA)
  Receive Date: 20210318
  Receipt Date: 20220119
  Transmission Date: 20220423
  Serious: Yes (Hospitalization, Other)
  Sender: FDA-Public Use
  Company Number: PHHY2016CA044309

PATIENT
  Age: 36 Year
  Sex: Female

DRUGS (3)
  1. SANDOSTATIN LAR DEPOT [Suspect]
     Active Substance: OCTREOTIDE ACETATE
     Indication: Neuroendocrine tumour
     Dosage: 30 MG, QMO
     Route: 030
     Dates: start: 20060406
  2. SANDOSTATIN LAR DEPOT [Suspect]
     Active Substance: OCTREOTIDE ACETATE
     Dosage: 30 MG, Q4W (OR QMO)
     Route: 030
     Dates: start: 20190524
  3. SANDOSTATIN LAR DEPOT [Suspect]
     Active Substance: OCTREOTIDE ACETATE

REACTIONS (7)
  - Diverticulitis [Unknown]
  - Abdominal pain upper [Unknown]
  - Cholangitis [Unknown]
  - Body temperature increased [Unknown]
  - Blood pressure diastolic increased [Unknown]
  - Blood bilirubin increased [Unknown]
  - Needle issue [Unknown]

NARRATIVE: CASE EVENT DATE: 20160331
